FAERS Safety Report 16851549 (Version 1)
Quarter: 2019Q3

REPORT INFORMATION
  Report Type: Spontaneous
  Country: DE (occurrence: DE)
  Receive Date: 20190925
  Receipt Date: 20190925
  Transmission Date: 20191005
  Serious: Yes (Congenital Anomaly, Other)
  Sender: FDA-Public Use
  Company Number: DE-PFIZER INC-2019411304

PATIENT
  Age: 1 Day
  Sex: Male
  Weight: 3 kg

DRUGS (8)
  1. FOLSAN [Concomitant]
     Active Substance: FOLIC ACID
     Dosage: UNK (4.1. - 38.4. GESTATIONAL WEEK)
     Route: 064
     Dates: start: 20171001, end: 20180530
  2. PREGABALIN. [Suspect]
     Active Substance: PREGABALIN
     Dosage: 300 MG, DAILY (TO 125,0. - 38.4. GESTATIONAL WEEK)
     Route: 064
     Dates: start: 20170902, end: 20180530
  3. DULOXETINE. [Suspect]
     Active Substance: DULOXETINE
     Dosage: 30 MG, DAILY (2.5. - 38.4. GESTATIONAL WEEK)
     Route: 064
     Dates: start: 20170921, end: 20180530
  4. MIRTAZAPIN [Suspect]
     Active Substance: MIRTAZAPINE
     Dosage: 7.5 MG, DAILY (0. - 38.4. GESTATIONAL WEEK)
     Route: 064
     Dates: start: 20170902, end: 20180530
  5. JUNIK [Concomitant]
     Active Substance: BECLOMETHASONE DIPROPIONATE
     Dosage: 100 UG, UNK (0. - 38.4. GESTATIONAL WEEK)
     Route: 064
     Dates: start: 20170902, end: 20180530
  6. XUSAL [Suspect]
     Active Substance: LEVOCETIRIZINE DIHYDROCHLORIDE
     Dosage: UNK (0. - 8. GESTATIONAL WEEK)
     Route: 064
  7. ESCITALOPRAM [Concomitant]
     Active Substance: ESCITALOPRAM OXALATE
     Dosage: 20 MG, DAILY (0. - 2.5. GESTATIONAL WEEK)
     Route: 064
     Dates: start: 20170902, end: 20170921
  8. SALBUTAMOL [Concomitant]
     Active Substance: ALBUTEROL
     Dosage: UNK (0. - 38.4. GESTATIONAL WEEK)
     Route: 064
     Dates: start: 20170902, end: 20180530

REACTIONS (6)
  - Neonatal seizure [Recovered/Resolved]
  - Cryptorchism [Unknown]
  - Foetal exposure during pregnancy [Not Recovered/Not Resolved]
  - Agitation neonatal [Recovered/Resolved]
  - Renal aplasia [Not Recovered/Not Resolved]
  - Neonatal hyponatraemia [Unknown]

NARRATIVE: CASE EVENT DATE: 20180530
